FAERS Safety Report 5445881-8 (Version None)
Quarter: 2007Q3

REPORT INFORMATION
  Report Type: 
  Country: None (occurrence: None)
  Receive Date: 20070907
  Receipt Date: 20070906
  Transmission Date: 20080115
  Serious: Yes (Death, Other)
  Sender: FDA-Public Use
  Company Number: PHNU2007DE03068

PATIENT
  Age: 45 Year
  Sex: Male

DRUGS (2)
  1. LEPONEX [Suspect]
     Dosage: 550 MG/DAY
     Route: 048
  2. PALIPERIDONE [Concomitant]

REACTIONS (2)
  - ARRHYTHMIA [None]
  - CATATONIA [None]
